FAERS Safety Report 4719827-1 (Version None)
Quarter: 2005Q3

REPORT INFORMATION
  Report Type: 
  Country: None (occurrence: None)
  Receive Date: 20050721
  Receipt Date: 20041124
  Transmission Date: 20060218
  Serious: No
  Sender: FDA-Public Use
  Company Number: US-GLAXOSMITHKLINE-A0535155A

PATIENT
  Age: 76 Year
  Sex: Female

DRUGS (10)
  1. AVANDIA [Suspect]
     Dosage: 8MG PER DAY
     Route: 048
     Dates: start: 20030101
  2. LANTUS [Concomitant]
  3. HUMALOG [Concomitant]
  4. LASIX [Concomitant]
  5. ACALIX [Concomitant]
  6. CARVEDILOL [Concomitant]
  7. VENLAFAXINE HCL [Concomitant]
  8. UNKNOWN MEDICATION [Concomitant]
  9. DIOVAN [Concomitant]
  10. DIGOXIN [Concomitant]

REACTIONS (1)
  - JOINT SWELLING [None]
